FAERS Safety Report 20618075 (Version 4)
Quarter: 2022Q3

REPORT INFORMATION
  Report Type: Report from Study
  Country: US (occurrence: US)
  Receive Date: 20220321
  Receipt Date: 20220719
  Transmission Date: 20221027
  Serious: Yes (Other)
  Sender: FDA-Public Use
  Company Number: US-TAKEDA-2022TUS011610

PATIENT
  Sex: Female
  Weight: 73 kg

DRUGS (5)
  1. PONATINIB [Suspect]
     Active Substance: PONATINIB
     Indication: Chronic myeloid leukaemia
     Dosage: 45 MILLIGRAM
     Route: 065
     Dates: start: 20220201, end: 20220213
  2. PONATINIB [Suspect]
     Active Substance: PONATINIB
     Indication: Chronic myeloid leukaemia transformation
     Dosage: 45 MILLIGRAM, QD
     Route: 065
     Dates: start: 20220128
  3. PONATINIB [Suspect]
     Active Substance: PONATINIB
     Dosage: 45 MILLIGRAM, QOD
     Route: 065
  4. PONATINIB [Suspect]
     Active Substance: PONATINIB
     Dosage: 120 MILLIGRAM, QD
     Route: 048
  5. PONATINIB [Suspect]
     Active Substance: PONATINIB
     Dosage: 30 MILLIGRAM, QD
     Route: 065

REACTIONS (7)
  - Deafness [Unknown]
  - Acute myeloid leukaemia [Unknown]
  - Cognitive disorder [Unknown]
  - Miliaria [Unknown]
  - White blood cell count increased [Unknown]
  - White blood cell count abnormal [Unknown]
  - Rash pruritic [Unknown]
